FAERS Safety Report 6821026-4 (Version None)
Quarter: 2010Q3

REPORT INFORMATION
  Report Type: 
  Country: None (occurrence: None)
  Receive Date: 20100707
  Receipt Date: 20071217
  Transmission Date: 20110219
  Serious: Yes (Life-Threatening, Other)
  Sender: FDA-Public Use
  Company Number: US-PFIZER INC-2007106166

PATIENT
  Sex: Female
  Weight: 105 kg

DRUGS (5)
  1. ZOLOFT [Suspect]
     Indication: OBSESSIVE-COMPULSIVE DISORDER
     Route: 048
     Dates: start: 19920101
  2. ZOLOFT [Suspect]
     Indication: GENERALISED ANXIETY DISORDER
  3. ZOLOFT [Suspect]
     Indication: DEPRESSION
  4. ATIVAN [Concomitant]
  5. ORAL CONTRACEPTIVE NOS [Concomitant]

REACTIONS (3)
  - DEPRESSION [None]
  - SUICIDAL IDEATION [None]
  - WITHDRAWAL SYNDROME [None]
